FAERS Safety Report 8095662-4 (Version None)
Quarter: 2012Q1

REPORT INFORMATION
  Report Type: 
  Country: None (occurrence: None)
  Receive Date: 20120129
  Receipt Date: 20111215
  Transmission Date: 20120608
  Serious: No
  Sender: FDA-Public Use
  Company Number: US-ABBOTT-11P-163-0883840-00

PATIENT
  Sex: Female

DRUGS (5)
  1. HUMIRA [Suspect]
     Indication: CROHN'S DISEASE
     Dosage: DAY 0
     Dates: start: 20111201
  2. HUMIRA [Suspect]
     Dosage: DAY 28
  3. PREDNISONE TAB [Concomitant]
     Indication: PRODUCT USED FOR UNKNOWN INDICATION
     Dates: start: 20111201
  4. HUMIRA [Suspect]
     Dosage: DAY 14
  5. HUMIRA [Suspect]

REACTIONS (1)
  - NIGHT SWEATS [None]
